FAERS Safety Report 20017763 (Version 1)
Quarter: 2021Q4

REPORT INFORMATION
  Report Type: Spontaneous
  Country: US (occurrence: US)
  Receive Date: 20211101
  Receipt Date: 20211101
  Transmission Date: 20220303
  Serious: No
  Sender: FDA-Public Use
  Company Number: US-drreddys-SPO/USA/21/0143308

PATIENT
  Age: 52 Year
  Sex: Female

DRUGS (1)
  1. ZENATANE [Suspect]
     Active Substance: ISOTRETINOIN
     Indication: Product used for unknown indication
     Dosage: RMA ISSUE DATE: 09 AUGUST 2021 12:11:50 PM, 31 AUGUST 2021 1:40:48 PM AND 04 OCTOBER 2021 3:06:29 PM

REACTIONS (4)
  - Constipation [Unknown]
  - Back pain [Unknown]
  - Rash [Unknown]
  - Dry skin [Unknown]
